FAERS Safety Report 4990455-6 (Version None)
Quarter: 2006Q2

REPORT INFORMATION
  Report Type: 
  Country: None (occurrence: None)
  Receive Date: 20060427
  Receipt Date: 20060418
  Transmission Date: 20061013
  Serious: Yes (Death, Hospitalization, Other)
  Sender: FDA-Public Use
  Company Number: 2006053006

PATIENT
  Age: 61 Year
  Sex: Male
  Weight: 79.3795 kg

DRUGS (4)
  1. XANAX [Suspect]
     Indication: ANXIETY
     Dosage: 1 MG (0.5 MG, 2 IN 1 D), ORAL
     Route: 048
     Dates: start: 19850101
  2. ALL OTHER THERAPEUTIC PRODUCTS (ALL OTHER THERAPEUTIC PRODUCTS) [Suspect]
     Indication: BLOOD CHOLESTEROL INCREASED
  3. GEMCITABINE [Suspect]
     Indication: NEOPLASM MALIGNANT
     Dates: start: 20050711
  4. ALL OTHER THERAPEUTIC PRODUCTS (ALL OTHER THERAPEUTIC PRODUCTS) [Suspect]
     Indication: NEOPLASM MALIGNANT
     Dates: start: 20050711

REACTIONS (8)
  - ASCITES [None]
  - BLOOD CHOLESTEROL INCREASED [None]
  - DISCOMFORT [None]
  - GASTRIC POLYPS [None]
  - METASTASES TO LIVER [None]
  - PANCREATIC CARCINOMA METASTATIC [None]
  - SWELLING [None]
  - WEIGHT DECREASED [None]
